FAERS Safety Report 6626680-8 (Version None)
Quarter: 2010Q1

REPORT INFORMATION
  Report Type: 
  Country: None (occurrence: None)
  Receive Date: 20100308
  Receipt Date: 20100224
  Transmission Date: 20100710
  Serious: Yes (Death, Hospitalization)
  Sender: FDA-Public Use
  Company Number: 2010US000257

PATIENT
  Age: 44 Year
  Sex: Male

DRUGS (3)
  1. PROGRAF [Suspect]
     Indication: LIVER TRANSPLANT
     Dosage: 5 MG, UID/QD, ORAL
     Route: 048
     Dates: start: 20081101
  2. PROGRAF [Suspect]
     Indication: LIVER TRANSPLANT
     Dosage: 6 MG, UID/QD, ORAL
     Route: 048
     Dates: end: 20100101
  3. MYCOPHENOLATE MOFETIL [Concomitant]

REACTIONS (2)
  - ACUTE PULMONARY HISTOPLASMOSIS [None]
  - HEADACHE [None]
